FAERS Safety Report 14895266 (Version 1)
Quarter: 2018Q2

REPORT INFORMATION
  Report Type: Spontaneous
  Country: FR (occurrence: FR)
  Receive Date: 20180515
  Receipt Date: 20180515
  Transmission Date: 20180711
  Serious: Yes (Other)
  Sender: FDA-Public Use
  Company Number: FR-MERCK KGAA-2047739

PATIENT
  Age: 35 Year
  Sex: Female
  Weight: 60 kg

DRUGS (1)
  1. NOVOTHYROX [Suspect]
     Active Substance: LEVOTHYROXINE SODIUM
     Indication: THYROID DISORDER
     Dates: start: 201705

REACTIONS (29)
  - Spinal pain [Recovering/Resolving]
  - Premenstrual syndrome [Recovering/Resolving]
  - Panic attack [Recovering/Resolving]
  - Thyroglobulin decreased [Recovering/Resolving]
  - Fatigue [Recovering/Resolving]
  - Hyperthyroidism [Recovering/Resolving]
  - Apathy [Recovering/Resolving]
  - Dyspnoea [Recovered/Resolved]
  - Sleep disorder [Recovering/Resolving]
  - Tremor [Recovered/Resolved]
  - Insomnia [Recovering/Resolving]
  - Palpitations [Recovered/Resolved]
  - Muscle spasms [Recovering/Resolving]
  - Anxiety [Recovering/Resolving]
  - Depressed mood [Recovering/Resolving]
  - Depression [Recovering/Resolving]
  - Peripheral coldness [Recovering/Resolving]
  - Blood thyroid stimulating hormone decreased [Recovered/Resolved]
  - Tachycardia [Recovering/Resolving]
  - Dizziness [Recovered/Resolved]
  - Gait disturbance [Recovering/Resolving]
  - Impaired driving ability [Recovering/Resolving]
  - Crying [Recovering/Resolving]
  - Rash vesicular [Recovering/Resolving]
  - Negative thoughts [Recovering/Resolving]
  - General physical health deterioration [Recovering/Resolving]
  - Impaired quality of life [Recovering/Resolving]
  - Affect lability [Recovering/Resolving]
  - Resting tremor [Recovering/Resolving]

NARRATIVE: CASE EVENT DATE: 20170504
